FAERS Safety Report 7249943-4 (Version None)
Quarter: 2011Q1

REPORT INFORMATION
  Report Type: 
  Country: None (occurrence: None)
  Receive Date: 20110128
  Receipt Date: 20100910
  Transmission Date: 20110831
  Serious: No
  Sender: FDA-Public Use
  Company Number: A0885536A

PATIENT
  Age: 34 Year
  Sex: Female

DRUGS (7)
  1. XANAX [Concomitant]
  2. SINGULAIR [Concomitant]
  3. WELLBUTRIN XL [Suspect]
     Dosage: 150MG TWICE PER DAY
     Route: 048
     Dates: start: 20100818
  4. SYNTHROID [Concomitant]
  5. FLONASE [Concomitant]
  6. CLARITIN [Concomitant]
  7. ADVAIR [Concomitant]

REACTIONS (7)
  - TINNITUS [None]
  - ANXIETY [None]
  - DIZZINESS [None]
  - CHEST PAIN [None]
  - DYSPNOEA [None]
  - HYPOAESTHESIA [None]
  - PARAESTHESIA [None]
